FAERS Safety Report 19993620 (Version 1)
Quarter: 2021Q4

REPORT INFORMATION
  Report Type: Spontaneous
  Country: CO (occurrence: CO)
  Receive Date: 20211025
  Receipt Date: 20211025
  Transmission Date: 20220303
  Serious: Yes (Life-Threatening, Hospitalization)
  Sender: FDA-Public Use
  Company Number: CO-ENDO PHARMACEUTICALS INC-2021-012322

PATIENT
  Age: 13 Year
  Sex: Male
  Weight: 64 kg

DRUGS (2)
  1. NEOSTIGMINE METHYLSULFATE [Suspect]
     Active Substance: NEOSTIGMINE METHYLSULFATE
     Indication: Neuromuscular blockade reversal
     Dosage: 1 MG (LESS THAN 40 UG/KG), AT THE END OF THE PROCEDURE
     Route: 065
  2. ATROPINE [Concomitant]
     Active Substance: ATROPINE
     Indication: Neuromuscular blockade reversal
     Dosage: UNK

REACTIONS (2)
  - Pulmonary oedema [Recovered/Resolved]
  - Cholinergic syndrome [Recovered/Resolved]
